FAERS Safety Report 4340773-X (Version None)
Quarter: 2004Q2

REPORT INFORMATION
  Report Type: 
  Country: None (occurrence: None)
  Receive Date: 20040413
  Receipt Date: 20040324
  Transmission Date: 20050107
  Serious: Yes (Hospitalization, Disabling)
  Sender: FDA-Public Use
  Company Number: 22821

PATIENT
  Age: 48 Year
  Sex: Female

DRUGS (2)
  1. BSS [Suspect]
     Indication: EYE IRRIGATION
     Dosage: 500 ML SINGLE SURGICAL USE IO
     Route: 031
     Dates: start: 20020320, end: 20020320
  2. BSS [Suspect]
     Indication: SURGERY
     Dosage: 500 ML SINGLE SURGICAL USE IO
     Route: 031
     Dates: start: 20020320, end: 20020320

REACTIONS (7)
  - BLINDNESS UNILATERAL [None]
  - ENDOPHTHALMITIS [None]
  - EYE INFECTION INTRAOCULAR [None]
  - PHARMACEUTICAL PRODUCT COMPLAINT [None]
  - POST PROCEDURAL COMPLICATION [None]
  - POSTOPERATIVE INFECTION [None]
  - STAPHYLOCOCCAL INFECTION [None]
